FAERS Safety Report 18283061 (Version 2)
Quarter: 2020Q4

REPORT INFORMATION
  Report Type: Spontaneous
  Country: DE (occurrence: DE)
  Receive Date: 20200918
  Receipt Date: 20201005
  Transmission Date: 20210113
  Serious: Yes (Other)
  Sender: FDA-Public Use
  Company Number: DE-PFIZER INC-2020359064

PATIENT
  Age: 31 Year
  Sex: Female

DRUGS (4)
  1. LEFLUNOMIDE. [Suspect]
     Active Substance: LEFLUNOMIDE
     Indication: RHEUMATOID ARTHRITIS
     Dosage: 20 MG (WASHED OUT IN JUN-2018 DUE TO PREGNANCY )
     Dates: start: 201701, end: 201801
  2. OLUMIANT [Suspect]
     Active Substance: BARICITINIB
     Indication: RHEUMATOID ARTHRITIS
     Dosage: 4 MG, 1X/DAY
     Dates: start: 201801, end: 20180606
  3. SULFASALAZINE. [Suspect]
     Active Substance: SULFASALAZINE
     Indication: RHEUMATOID ARTHRITIS
     Dosage: 500 MG (INCREASED TO 2-0-2)
     Dates: start: 20180808, end: 20190214
  4. OLUMIANT [Suspect]
     Active Substance: BARICITINIB
     Dosage: 4 MG, 1X/DAY
     Dates: start: 201902, end: 20190501

REACTIONS (3)
  - Maternal exposure during pregnancy [Unknown]
  - Perinatal depression [Unknown]
  - Gestational diabetes [Recovered/Resolved]
